FAERS Safety Report 12299979 (Version 8)
Quarter: 2017Q1

REPORT INFORMATION
  Report Type: Spontaneous
  Country: JP (occurrence: JP)
  Receive Date: 20160425
  Receipt Date: 20170117
  Transmission Date: 20170428
  Serious: Yes (Other)
  Sender: FDA-Public Use
  Company Number: PHJP2016JP010128

PATIENT
  Age: 54 Year
  Sex: Male
  Weight: 46 kg

DRUGS (11)
  1. AFINITOR [Suspect]
     Active Substance: EVEROLIMUS
     Indication: PANCREATIC NEUROENDOCRINE TUMOUR
     Dosage: 10 MG, QD
     Route: 048
     Dates: start: 20140729, end: 20140829
  2. EXCELASE [Concomitant]
     Active Substance: PANCRELIPASE
     Indication: DIARRHOEA
     Dosage: 1 DF, TID
     Route: 048
  3. LOXOPROFEN [Concomitant]
     Active Substance: LOXOPROFEN
     Indication: ARTHRITIS
     Dosage: 60 MG, QD
     Route: 048
     Dates: start: 201109
  4. AFINITOR [Suspect]
     Active Substance: EVEROLIMUS
     Dosage: 5 MG, QD
     Route: 048
     Dates: start: 20141119
  5. LOPEMIN [Concomitant]
     Active Substance: LOPERAMIDE HYDROCHLORIDE
     Indication: DIARRHOEA
     Dosage: 1 MG, QD
     Route: 048
     Dates: start: 201505
  6. BETANIS [Concomitant]
     Active Substance: MIRABEGRON
     Indication: NOCTURIA
     Dosage: 50 MG, QD
     Route: 048
     Dates: start: 20160309
  7. ALFACALCIDOL [Concomitant]
     Active Substance: ALFACALCIDOL
     Indication: HYPOPARATHYROIDISM
     Dosage: 0.75 UG, QD
     Route: 048
  8. TAMSULOSIN [Concomitant]
     Active Substance: TAMSULOSIN
     Indication: BENIGN PROSTATIC HYPERPLASIA
     Dosage: 0.1 MG, QD
     Route: 048
     Dates: start: 20160516
  9. CALCIUM [Concomitant]
     Active Substance: CALCIUM
     Indication: HYPOPARATHYROIDISM
     Dosage: 1 G, BID
     Route: 048
  10. SOLANAX [Concomitant]
     Active Substance: ALPRAZOLAM
     Indication: ANXIETY DISORDER
     Dosage: 0.4 MG, BID
     Route: 048
  11. PREDNISOLONE. [Concomitant]
     Active Substance: PREDNISOLONE
     Indication: ARTHRITIS
     Dosage: 0.5 MG, BID
     Route: 048
     Dates: start: 201108

REACTIONS (5)
  - Necrosis [Not Recovered/Not Resolved]
  - Chills [Unknown]
  - Drug effect incomplete [Not Recovered/Not Resolved]
  - Pneumonia [Recovered/Resolved]
  - Pyrexia [Unknown]

NARRATIVE: CASE EVENT DATE: 20140827
